FAERS Safety Report 5187336-4 (Version None)
Quarter: 2006Q4

REPORT INFORMATION
  Report Type: 
  Country: None (occurrence: None)
  Receive Date: 20061214
  Receipt Date: 20061201
  Transmission Date: 20070319
  Serious: Yes (Hospitalization, Other)
  Sender: FDA-Public Use
  Company Number: 2006136984

PATIENT
  Age: 32 Year
  Sex: Male

DRUGS (3)
  1. CELEBREX [Suspect]
     Indication: PROPHYLAXIS
     Dosage: 400 MG (400 MG, 1 IN 1 D), ORAL
     Route: 048
     Dates: start: 20061021, end: 20061021
  2. PROPOFOL [Concomitant]
  3. ULTIVA [Concomitant]

REACTIONS (9)
  - ABDOMINAL TENDERNESS [None]
  - MALAISE [None]
  - NAUSEA [None]
  - NEPHROPATHY TOXIC [None]
  - PALLOR [None]
  - PROTEINURIA [None]
  - RENAL IMPAIRMENT [None]
  - RENAL PAIN [None]
  - TESTICULAR PAIN [None]
